FAERS Safety Report 11917347 (Version 2)
Quarter: 2016Q1

REPORT INFORMATION
  Report Type: Spontaneous
  Country: US (occurrence: US)
  Receive Date: 20160114
  Receipt Date: 20160120
  Transmission Date: 20160526
  Serious: No
  Sender: FDA-Public Use
  Company Number: US-HORIZON-DUE-0003-2016

PATIENT
  Age: 78 Year
  Sex: Female

DRUGS (2)
  1. DUEXIS [Suspect]
     Active Substance: FAMOTIDINE\IBUPROFEN
     Indication: MUSCULOSKELETAL DISCOMFORT
     Dosage: DAILY DOSE AND FREQUENCY NOT SURE
     Route: 048
     Dates: start: 20151203
  2. CHOLESTEROL [Concomitant]
     Active Substance: CHOLESTEROL

REACTIONS (5)
  - Off label use [Not Recovered/Not Resolved]
  - Urticaria [Not Recovered/Not Resolved]
  - Intentional product use issue [Unknown]
  - Rash [Not Recovered/Not Resolved]
  - Drug dose omission [Recovered/Resolved]

NARRATIVE: CASE EVENT DATE: 20160106
